FAERS Safety Report 18559737 (Version 1)
Quarter: 2020Q4

REPORT INFORMATION
  Report Type: Spontaneous
  Country: CA (occurrence: CA)
  Receive Date: 20201130
  Receipt Date: 20201130
  Transmission Date: 20210114
  Serious: Yes (Death, Hospitalization, Other)
  Sender: FDA-Public Use
  Company Number: CA-GLAXOSMITHKLINE-CA2020GSK235805

PATIENT
  Sex: Female

DRUGS (1)
  1. AVANDIA [Suspect]
     Active Substance: ROSIGLITAZONE MALEATE
     Dosage: UNK UNK, QD
     Route: 065
     Dates: start: 20080902, end: 20090215

REACTIONS (7)
  - Death [Fatal]
  - Cardiac disorder [Unknown]
  - Coronary artery disease [Unknown]
  - Coronary artery bypass [Unknown]
  - Angina unstable [Unknown]
  - Bradycardia [Unknown]
  - Atrial fibrillation [Unknown]
